FAERS Safety Report 5756342-0 (Version None)
Quarter: 2008Q2

REPORT INFORMATION
  Report Type: 
  Country: None (occurrence: None)
  Receive Date: 20080528
  Receipt Date: 20080528
  Transmission Date: 20081010
  Serious: No
  Sender: FDA-Public Use
  Company Number: None

PATIENT
  Age: 39 Year
  Sex: Male
  Weight: 122.4712 kg

DRUGS (2)
  1. URSODIOL [Suspect]
     Indication: OBESITY
     Dosage: 1TABLET 2TIME DAILY PO
     Route: 048
     Dates: start: 20080503, end: 20080610
  2. URSODIOL [Suspect]
     Indication: SURGERY
     Dosage: 1TABLET 2TIME DAILY PO
     Route: 048
     Dates: start: 20080503, end: 20080610

REACTIONS (4)
  - ARTHRALGIA [None]
  - BACK PAIN [None]
  - CONSTIPATION [None]
  - DIZZINESS [None]
